FAERS Safety Report 21498339 (Version 2)
Quarter: 2022Q4

REPORT INFORMATION
  Report Type: Spontaneous
  Country: US (occurrence: None)
  Receive Date: 20221024
  Receipt Date: 20221220
  Transmission Date: 20230113
  Serious: No
  Sender: FDA-Public Use
  Company Number: 2022A334305

PATIENT
  Sex: Female
  Weight: 86.2 kg

DRUGS (1)
  1. SYMBICORT [Suspect]
     Active Substance: BUDESONIDE\FORMOTEROL FUMARATE DIHYDRATE
     Indication: Asthma
     Dosage: 80/4.5MCG TWO RESPIRATORY INHALATIONS IN THE MORNING
     Route: 055

REACTIONS (6)
  - Asthma [Unknown]
  - Dysphonia [Unknown]
  - Device use issue [Unknown]
  - Wrong technique in device usage process [Unknown]
  - Intentional product use issue [Unknown]
  - Device malfunction [Unknown]
